FAERS Safety Report 22094704 (Version 1)
Quarter: 2023Q1

REPORT INFORMATION
  Report Type: Spontaneous
  Country: US (occurrence: US)
  Receive Date: 20230314
  Receipt Date: 20230314
  Transmission Date: 20230418
  Serious: No
  Sender: FDA-Public Use
  Company Number: US-TEVA-2023-US-2861137

PATIENT

DRUGS (1)
  1. MODAFINIL [Suspect]
     Active Substance: MODAFINIL
     Indication: Product used for unknown indication
     Dosage: 100 MILLIGRAM
     Route: 065

REACTIONS (7)
  - Blood lead decreased [Unknown]
  - Memory impairment [Unknown]
  - Tachyphrenia [Unknown]
  - Stress [Unknown]
  - Loss of dreaming [Recovered/Resolved]
  - Drug intolerance [Unknown]
  - Insurance issue [Unknown]
